FAERS Safety Report 8055556-7 (Version None)
Quarter: 2011Q4

REPORT INFORMATION
  Report Type: 
  Country: None (occurrence: None)
  Receive Date: 20111213
  Receipt Date: 20110830
  Transmission Date: 20120403
  Serious: Yes (Other)
  Sender: FDA-Public Use
  Company Number: 2011SP041129

PATIENT
  Age: 50 Year
  Sex: Female

DRUGS (5)
  1. WELLBUTRIN [Concomitant]
  2. PAXIL [Concomitant]
  3. SAPHRIS [Suspect]
     Indication: BIPOLAR DISORDER
     Dosage: 5 MG;HS
     Dates: start: 20110701
  4. SAPHRIS [Suspect]
     Indication: DEPRESSION
     Dosage: 5 MG;HS
     Dates: start: 20110701
  5. SEROQUEL [Concomitant]

REACTIONS (5)
  - RESTLESSNESS [None]
  - TREMOR [None]
  - INAPPROPRIATE SCHEDULE OF DRUG ADMINISTRATION [None]
  - UNDERDOSE [None]
  - AKATHISIA [None]
